FAERS Safety Report 6430656-3 (Version None)
Quarter: 2009Q4

REPORT INFORMATION
  Report Type: 
  Country: None (occurrence: None)
  Receive Date: 20091106
  Receipt Date: 20091030
  Transmission Date: 20100525
  Serious: Yes (Other)
  Sender: FDA-Public Use
  Company Number: B0600884A

PATIENT
  Sex: Male

DRUGS (4)
  1. FORTUM [Suspect]
     Dosage: 400MG THREE TIMES PER DAY
     Route: 042
     Dates: start: 20091019
  2. IMMUNE GLOBULIN INTRAVENOUS (HUMAN) [Suspect]
     Indication: IMMUNODEFICIENCY
     Dosage: 1UNIT SINGLE DOSE
     Route: 042
     Dates: start: 20091022
  3. VANCOMYCIN [Suspect]
     Dosage: 340MG PER DAY
     Route: 042
     Dates: start: 20091019
  4. BACTRIM [Suspect]
     Indication: SUPERINFECTION
     Dosage: 200MG THREE TIMES PER WEEK
     Route: 048

REACTIONS (2)
  - OEDEMA PERIPHERAL [None]
  - URTICARIA [None]
